FAERS Safety Report 21897770 (Version 2)
Quarter: 2023Q2

REPORT INFORMATION
  Report Type: Spontaneous
  Country: US (occurrence: US)
  Receive Date: 20230123
  Receipt Date: 20230426
  Transmission Date: 20230721
  Serious: No
  Sender: FDA-Public Use
  Company Number: US-SA-SAC20230120000220

PATIENT
  Age: 38 Year
  Sex: Female

DRUGS (1)
  1. DUPIXENT [Suspect]
     Active Substance: DUPILUMAB
     Dosage: 300 MG, OTHER
     Route: 058
     Dates: start: 20221025

REACTIONS (5)
  - Abdominal pain upper [Unknown]
  - Vision blurred [Unknown]
  - Injection site inflammation [Unknown]
  - Injection site erythema [Unknown]
  - Injection site swelling [Unknown]
